FAERS Safety Report 8116068-5 (Version None)
Quarter: 2012Q1

REPORT INFORMATION
  Report Type: 
  Country: None (occurrence: None)
  Receive Date: 20120206
  Receipt Date: 20120201
  Transmission Date: 20120608
  Serious: Yes (Other)
  Sender: FDA-Public Use
  Company Number: US-PFIZER INC-2012028422

PATIENT
  Sex: Male
  Weight: 93.878 kg

DRUGS (3)
  1. NARDIL [Suspect]
     Indication: DEPRESSION
     Dosage: 60 MG, 2X/DAY
     Route: 048
     Dates: start: 19820101
  2. AMARYL [Concomitant]
     Indication: DIABETES MELLITUS
     Dosage: 2 MG, DAILY
     Route: 048
  3. ACTOS [Concomitant]
     Indication: DIABETES MELLITUS
     Dosage: UNK, DAILY

REACTIONS (1)
  - BREAST DISORDER MALE [None]
